FAERS Safety Report 21956470 (Version 1)
Quarter: 2023Q1

REPORT INFORMATION
  Report Type: Spontaneous
  Country: US (occurrence: US)
  Receive Date: 20230206
  Receipt Date: 20230206
  Transmission Date: 20230417
  Serious: No
  Sender: FDA-Public Use
  Company Number: US-SA-SAC20230201000446

PATIENT
  Sex: Female

DRUGS (1)
  1. XENPOZYME [Suspect]
     Active Substance: OLIPUDASE ALFA-RPCP
     Route: 065

REACTIONS (4)
  - Infusion site reaction [Unknown]
  - Nausea [Unknown]
  - Headache [Unknown]
  - Fatigue [Unknown]
